FAERS Safety Report 14230622 (Version 3)
Quarter: 2018Q2

REPORT INFORMATION
  Report Type: Spontaneous
  Country: GB (occurrence: GB)
  Receive Date: 20171128
  Receipt Date: 20180417
  Transmission Date: 20180711
  Serious: Yes (Other)
  Sender: FDA-Public Use
  Company Number: GB-PFIZER INC-2017504740

PATIENT
  Age: 44 Year
  Sex: Female

DRUGS (2)
  1. GABAPENTIN. [Suspect]
     Active Substance: GABAPENTIN
     Indication: ARTHRITIS
     Dosage: 300 MG, 4X/DAY
  2. GABAPENTIN. [Suspect]
     Active Substance: GABAPENTIN
     Dosage: 600 MG, 4X/DAY

REACTIONS (17)
  - Migraine [Unknown]
  - Withdrawal syndrome [Unknown]
  - Malaise [Unknown]
  - Insomnia [Unknown]
  - Visual acuity reduced [Unknown]
  - Gait disturbance [Unknown]
  - Derealisation [Unknown]
  - Mental impairment [Unknown]
  - Feeling abnormal [Unknown]
  - Sleep disorder [Unknown]
  - Feeling drunk [Unknown]
  - Nausea [Unknown]
  - Memory impairment [Unknown]
  - Intentional product use issue [Unknown]
  - Drug ineffective for unapproved indication [Unknown]
  - Tremor [Unknown]
  - Headache [Unknown]
